FAERS Safety Report 13507257 (Version 1)
Quarter: 2017Q2

REPORT INFORMATION
  Report Type: Spontaneous
  Country: US (occurrence: US)
  Receive Date: 20170503
  Receipt Date: 20170503
  Transmission Date: 20170830
  Serious: No
  Sender: FDA-Public Use
  Company Number: US-TEVA-716085ACC

PATIENT
  Age: 36 Year
  Sex: Female
  Weight: 54.48 kg

DRUGS (1)
  1. EQ MICONAZOLE 7 DISPOSAL [Suspect]
     Active Substance: MICONAZOLE
     Dates: start: 20160930, end: 20161001

REACTIONS (1)
  - Burning sensation [Unknown]

NARRATIVE: CASE EVENT DATE: 20161005
